FAERS Safety Report 5886158-6 (Version None)
Quarter: 2008Q3

REPORT INFORMATION
  Report Type: 
  Country: None (occurrence: None)
  Receive Date: 20080917
  Receipt Date: 20080904
  Transmission Date: 20090109
  Serious: Yes (Life-Threatening, Hospitalization, Other)
  Sender: FDA-Public Use
  Company Number: CA-BAYER-200832946NA

PATIENT
  Age: 74 Year
  Sex: Female
  Weight: 100 kg

DRUGS (6)
  1. AVELOX [Suspect]
     Indication: DRUG USE FOR UNKNOWN INDICATION
  2. ATACAND [Concomitant]
  3. AVANDIA [Concomitant]
  4. METFORMIN [Concomitant]
  5. NSAIDS [Concomitant]
  6. PREDNISONE TAB [Concomitant]

REACTIONS (8)
  - ANAEMIA [None]
  - BLOOD CREATININE INCREASED [None]
  - ERYTHEMA [None]
  - FACE OEDEMA [None]
  - LIP SWELLING [None]
  - PRURITUS [None]
  - THROMBOCYTOPENIA [None]
  - URTICARIA [None]
